FAERS Safety Report 6194476-X (Version None)
Quarter: 2009Q2

REPORT INFORMATION
  Report Type: 
  Country: None (occurrence: None)
  Receive Date: 20090519
  Receipt Date: 20090514
  Transmission Date: 20091009
  Serious: Yes (Death)
  Sender: FDA-Public Use
  Company Number: JP-JNJFOC-20090503361

PATIENT
  Age: 70 Year
  Sex: Male

DRUGS (1)
  1. FINIBAX [Suspect]
     Indication: PNEUMONIA
     Route: 041

REACTIONS (1)
  - LIVER DISORDER [None]
